FAERS Safety Report 18253131 (Version 1)
Quarter: 2020Q3

REPORT INFORMATION
  Report Type: Spontaneous
  Country: US (occurrence: US)
  Receive Date: 20200910
  Receipt Date: 20200910
  Transmission Date: 20201103
  Serious: Yes (Other)
  Sender: FDA-Public Use
  Company Number: US-HORIZON-PRE-0268-2020

PATIENT
  Age: 35 Year
  Sex: Male

DRUGS (3)
  1. PREDNISONE. [Suspect]
     Active Substance: PREDNISONE
     Indication: HYPER IGE SYNDROME
     Route: 048
  2. FLUTICASONE PROPIONATE 500 UG, SALMETEROL 50 UG [Concomitant]
     Indication: ASTHMA
     Dosage: 1 PUFF
     Route: 055
  3. SALBUTAMOL [Concomitant]
     Active Substance: ALBUTEROL
     Indication: ASTHMA
     Dosage: 2 PUFFS EVERY 4 TO 6 HOURS
     Route: 055

REACTIONS (2)
  - Infection [Unknown]
  - Osteonecrosis of jaw [Unknown]
